FAERS Safety Report 7935195-6 (Version None)
Quarter: 2011Q4

REPORT INFORMATION
  Report Type: 
  Country: None (occurrence: None)
  Receive Date: 20111122
  Receipt Date: 20111118
  Transmission Date: 20120403
  Serious: Yes (Other)
  Sender: FDA-Public Use
  Company Number: US-BAYER-2011-095747

PATIENT
  Age: 26 Year
  Sex: Female

DRUGS (1)
  1. MIRENA [Suspect]
     Indication: CONTRACEPTION
     Dosage: UNK
     Route: 015
     Dates: start: 20100210

REACTIONS (4)
  - ECTOPIC PREGNANCY WITH INTRAUTERINE DEVICE [None]
  - ABDOMINAL PAIN [None]
  - GENITAL HAEMORRHAGE [None]
  - DEVICE DISLOCATION [None]
